FAERS Safety Report 7279322-5 (Version None)
Quarter: 2011Q1

REPORT INFORMATION
  Report Type: 
  Country: None (occurrence: None)
  Receive Date: 20110207
  Receipt Date: 20110128
  Transmission Date: 20110831
  Serious: Yes (Hospitalization, Other)
  Sender: FDA-Public Use
  Company Number: US-MERCK-0905USA00168

PATIENT
  Age: 61 Year
  Sex: Female

DRUGS (4)
  1. FERROUS SULFATE [Concomitant]
     Indication: ANAEMIA
     Route: 065
     Dates: start: 19900101
  2. ATIVAN [Concomitant]
     Indication: ANXIETY
     Route: 065
     Dates: start: 19950101
  3. FOSAMAX [Suspect]
     Indication: OSTEOPOROSIS
     Route: 048
     Dates: start: 19971001, end: 20020615
  4. FOLIC ACID [Concomitant]
     Indication: ROUTINE HEALTH MAINTENANCE
     Route: 065
     Dates: start: 19790101

REACTIONS (20)
  - ARTHROPATHY [None]
  - BONE DISORDER [None]
  - PNEUMONIA [None]
  - MASTICATION DISORDER [None]
  - GASTRIC DISORDER [None]
  - OSTEONECROSIS OF JAW [None]
  - GALLBLADDER DISORDER [None]
  - EXOSTOSIS [None]
  - GASTROOESOPHAGEAL REFLUX DISEASE [None]
  - PAIN IN JAW [None]
  - WEIGHT DECREASED [None]
  - HAEMORRHOIDS [None]
  - FRACTURE [None]
  - IMPAIRED HEALING [None]
  - FATIGUE [None]
  - ORAL DISORDER [None]
  - FUNGAL INFECTION [None]
  - ORAL INFECTION [None]
  - ORAL TORUS [None]
  - ANGIOPATHY [None]
